FAERS Safety Report 10200526 (Version 1)
Quarter: 2014Q2

REPORT INFORMATION
  Report Type: Spontaneous
  Country: US (occurrence: US)
  Receive Date: 20140528
  Receipt Date: 20140528
  Transmission Date: 20141212
  Serious: No
  Sender: FDA-Public Use
  Company Number: US-BIOGENIDEC-2014BI048189

PATIENT
  Age: 47 Year
  Sex: Male

DRUGS (1)
  1. AVONEX [Suspect]
     Indication: MULTIPLE SCLEROSIS
     Route: 030
     Dates: start: 20101127

REACTIONS (4)
  - Injection site haemorrhage [Recovered/Resolved]
  - Sensory disturbance [Not Recovered/Not Resolved]
  - Injection site reaction [Not Recovered/Not Resolved]
  - Paraesthesia [Not Recovered/Not Resolved]
